FAERS Safety Report 4603576-4 (Version None)
Quarter: 2005Q1

REPORT INFORMATION
  Report Type: 
  Country: None (occurrence: None)
  Receive Date: 20050308
  Receipt Date: 20050222
  Transmission Date: 20050727
  Serious: Yes (Hospitalization)
  Sender: FDA-Public Use
  Company Number: THQ2005A00188

PATIENT
  Age: 46 Year
  Sex: Male

DRUGS (3)
  1. ACTOS [Suspect]
     Indication: DIABETES MELLITUS
     Dosage: 15 MG (1 D) PER ORAL
     Route: 048
     Dates: start: 20041105, end: 20041108
  2. METFORMIN HCL [Concomitant]
  3. GLUCONORM (GLIBENCLAMIDE) [Concomitant]

REACTIONS (4)
  - CHOLELITHIASIS [None]
  - JAUNDICE CHOLESTATIC [None]
  - PANCREATIC CARCINOMA [None]
  - VISUAL DISTURBANCE [None]
